FAERS Safety Report 9168287 (Version 1)
Quarter: 2013Q1

REPORT INFORMATION
  Report Type: Spontaneous
  Country: US (occurrence: None)
  Receive Date: 20130313
  Receipt Date: 20130313
  Transmission Date: 20140127
  Serious: No
  Sender: FDA-Public Use
  Company Number: None

PATIENT
  Age: 48 Year
  Sex: Female

DRUGS (6)
  1. REVLIMID 5 MG CELGENE [Suspect]
     Indication: PLASMA CELL MYELOMA
     Dosage: QD X 21/28D BY MOUTH
     Dates: start: 201112, end: 201203
  2. PREDNISONE [Concomitant]
  3. PLAQUENIL [Concomitant]
  4. PANTOPRAZOLE [Concomitant]
  5. TRAZODONE [Concomitant]
  6. ALBUTEROL INHALER [Concomitant]

REACTIONS (2)
  - Respiratory tract infection [None]
  - Pneumonia [None]
